FAERS Safety Report 6298304-3 (Version None)
Quarter: 2009Q3

REPORT INFORMATION
  Report Type: 
  Country: None (occurrence: None)
  Receive Date: 20090805
  Receipt Date: 20090731
  Transmission Date: 20100115
  Serious: Yes (Death, Hospitalization)
  Sender: FDA-Public Use
  Company Number: FR-WYE-G04157109

PATIENT
  Sex: Male

DRUGS (13)
  1. TAZOCILLINE [Suspect]
     Indication: URINARY TRACT INFECTION STAPHYLOCOCCAL
     Route: 042
     Dates: start: 20090619, end: 20090626
  2. TAZOCILLINE [Suspect]
     Route: 042
     Dates: start: 20090627
  3. CIFLOX [Suspect]
     Indication: PROSTATITIS
     Route: 048
     Dates: start: 20090606, end: 20090618
  4. CIFLOX [Suspect]
     Indication: SERRATIA INFECTION
  5. TARGOCID [Suspect]
     Indication: PNEUMONIA ASPIRATION
     Route: 042
     Dates: start: 20090619, end: 20090626
  6. TARGOCID [Suspect]
     Route: 042
     Dates: start: 20090627, end: 20090628
  7. TARGOCID [Suspect]
     Route: 042
     Dates: start: 20090629
  8. RENITEC [Concomitant]
  9. REYATAZ [Concomitant]
     Indication: HIV INFECTION
  10. AMAREL [Concomitant]
  11. EQUANIL [Concomitant]
  12. TRUVADA [Suspect]
     Indication: HIV INFECTION
     Route: 048
     Dates: start: 20060922, end: 20090615
  13. NORVIR [Concomitant]

REACTIONS (10)
  - CACHEXIA [None]
  - CONDITION AGGRAVATED [None]
  - DECREASED APPETITE [None]
  - HAEMORRHAGIC ANAEMIA [None]
  - HYPOTENSION [None]
  - MELAENA [None]
  - MULTI-ORGAN FAILURE [None]
  - PNEUMONIA ASPIRATION [None]
  - PULMONARY EMBOLISM [None]
  - RENAL FAILURE [None]
